FAERS Safety Report 11046024 (Version 2)
Quarter: 2015Q2

REPORT INFORMATION
  Report Type: Spontaneous
  Country: US (occurrence: US)
  Receive Date: 20150418
  Receipt Date: 20150526
  Transmission Date: 20150821
  Serious: No
  Sender: FDA-Public Use
  Company Number: US-JNJFOC-20140212838

PATIENT
  Sex: Female

DRUGS (3)
  1. HALOPERIDOL DECANOATE. [Suspect]
     Active Substance: HALOPERIDOL DECANOATE
     Indication: SCHIZOPHRENIA
     Dosage: ONCE MONTHLY
     Route: 030
     Dates: start: 2013
  2. VALPROIC ACID. [Concomitant]
     Active Substance: VALPROIC ACID
     Indication: DRUG THERAPY
     Route: 048
     Dates: start: 20140219
  3. VALPROIC ACID. [Concomitant]
     Active Substance: VALPROIC ACID
     Indication: DRUG THERAPY
     Route: 048
     Dates: end: 20140219

REACTIONS (2)
  - Agitation [Not Recovered/Not Resolved]
  - Paranoia [Not Recovered/Not Resolved]

NARRATIVE: CASE EVENT DATE: 2013
